FAERS Safety Report 24653184 (Version 1)
Quarter: 2024Q4

REPORT INFORMATION
  Report Type: Spontaneous
  Country: US (occurrence: US)
  Receive Date: 20241122
  Receipt Date: 20241122
  Transmission Date: 20250115
  Serious: No
  Sender: PFIZER
  Company Number: US-PFIZER INC-202400256452

PATIENT
  Age: 60 Year
  Sex: Female

DRUGS (3)
  1. TIVDAK [Suspect]
     Active Substance: TISOTUMAB VEDOTIN-TFTV
     Indication: Endometrial neoplasm
     Dosage: 100.4 MG, EVERY 3 WEEKS
     Route: 042
  2. TIVDAK [Suspect]
     Active Substance: TISOTUMAB VEDOTIN-TFTV
     Indication: Uterine cancer
     Dosage: 97 MG
  3. TIVDAK [Suspect]
     Active Substance: TISOTUMAB VEDOTIN-TFTV
     Dosage: 102 MG, EVERY 3 WEEKS
     Route: 042

REACTIONS (2)
  - Weight increased [Not Recovered/Not Resolved]
  - Off label use [Unknown]
